FAERS Safety Report 4618279-X (Version None)
Quarter: 2005Q1

REPORT INFORMATION
  Report Type: 
  Country: None (occurrence: None)
  Receive Date: 20050323
  Receipt Date: 20050315
  Transmission Date: 20050727
  Serious: Yes (Life-Threatening)
  Sender: FDA-Public Use
  Company Number: K200500368

PATIENT
  Age: 68 Year
  Sex: Female

DRUGS (3)
  1. ALTACE [Suspect]
     Indication: VENTRICULAR DYSFUNCTION
     Dosage: ORAL
     Route: 048
     Dates: start: 20040916, end: 20040930
  2. NEULIN (THEOPHYLLINE) [Concomitant]
  3. FUROSEMIDE [Concomitant]

REACTIONS (3)
  - ANGIONEUROTIC OEDEMA [None]
  - LARYNGEAL OBSTRUCTION [None]
  - OESOPHAGEAL OBSTRUCTION [None]
